FAERS Safety Report 9838508 (Version 1)
Quarter: 2013Q4

REPORT INFORMATION
  Report Type: Spontaneous
  Country: US (occurrence: None)
  Receive Date: 20131206
  Receipt Date: 20131206
  Transmission Date: 20140711
  Serious: Yes (Other)
  Sender: FDA-Public Use
  Company Number: 373545

PATIENT
  Sex: Female

DRUGS (1)
  1. NOVOLOG [Suspect]
     Indication: GESTATIONAL DIABETES
     Route: 058
     Dates: start: 2011, end: 2011

REACTIONS (2)
  - Anaphylactic reaction [None]
  - Exposure during pregnancy [None]
